FAERS Safety Report 8931604 (Version 4)
Quarter: 2014Q1

REPORT INFORMATION
  Report Type: Report from Study
  Country: US (occurrence: US)
  Receive Date: 20121128
  Receipt Date: 20140213
  Transmission Date: 20141002
  Serious: Yes (Hospitalization)
  Sender: FDA-Public Use
  Company Number: US-ACTELION-A-US2011-47358

PATIENT
  Age: 80 Year
  Sex: Female

DRUGS (4)
  1. TRACLEER [Suspect]
     Indication: PULMONARY ARTERIAL HYPERTENSION
     Dosage: UNK
     Route: 048
  2. LIPITOR [Concomitant]
  3. NEURONTIN [Concomitant]
  4. TUSSIONEX [Concomitant]

REACTIONS (5)
  - Hypertension [Unknown]
  - Blood pressure increased [Unknown]
  - Hypotension [Recovered/Resolved]
  - Constipation [Recovered/Resolved]
  - Anxiety [Recovered/Resolved]
